FAERS Safety Report 5311565-X (Version None)
Quarter: 2007Q2

REPORT INFORMATION
  Report Type: 
  Country: None (occurrence: None)
  Receive Date: 20070426
  Receipt Date: 20070426
  Transmission Date: 20071010
  Serious: Yes (Other)
  Sender: FDA-Public Use
  Company Number: None

PATIENT
  Age: 44 Year
  Sex: Male
  Weight: 80 kg

DRUGS (35)
  1. PRIMAXIN [Suspect]
     Indication: INFECTION
     Dosage: 500 MG IV Q12 HR
     Route: 042
     Dates: start: 20061024, end: 20061117
  2. APAP TAB [Concomitant]
  3. LORAZEPAM [Concomitant]
  4. APAP/OXYCODONE [Concomitant]
  5. AMITRIPTYLINE HCL [Concomitant]
  6. HALOPERIDOL [Concomitant]
  7. ACIDOPHILUS [Concomitant]
  8. HYDROXYZINE PAMOATE [Concomitant]
  9. ASCORBIC ACID [Concomitant]
  10. ASPIRIN TAB, CHEWABLE [Concomitant]
  11. ATENOLOL [Concomitant]
  12. BACITRACIN OINT, TOP [Concomitant]
  13. BACLOFEN [Concomitant]
  14. BISACODYL [Concomitant]
  15. CHLOROPHYLL/PAPAIN/UREA OINT [Concomitant]
  16. AYANOCOBALAMIN INJ, SOLN [Concomitant]
  17. D-5/NS 0.45% INJ, SOLN [Concomitant]
  18. DANTROLENE SODIUM [Concomitant]
  19. DANTROLENE SODIUM [Concomitant]
  20. DIVALPROEX SODIUM [Concomitant]
  21. DOCUSATE MINI ENEMA [Concomitant]
  22. FERROUS SULFATE EC [Concomitant]
  23. HALOPERIDOL INJ, SOLN [Concomitant]
  24. HYDROXYZINE PAMOATE [Concomitant]
  25. KETOCONAZOLE [Concomitant]
  26. METRONIDAZOLE [Concomitant]
  27. MINERALS/MULTIVITAMINS [Concomitant]
  28. OMEPRAZOLE [Concomitant]
  29. POTASSIUM CHLORIDE [Concomitant]
  30. PROMETHAZINE [Concomitant]
  31. SILVER SULFADIAZINE [Concomitant]
  32. ZINC SULFATE [Concomitant]
  33. WARFARIN [Concomitant]
  34. . [Concomitant]
  35. . [Concomitant]

REACTIONS (4)
  - CHOLELITHIASIS [None]
  - CLOSTRIDIUM DIFFICILE COLITIS [None]
  - NEPHROLITHIASIS [None]
  - RASH MACULAR [None]
